FAERS Safety Report 4932981-1 (Version None)
Quarter: 2006Q1

REPORT INFORMATION
  Report Type: 
  Country: None (occurrence: None)
  Receive Date: 20060301
  Receipt Date: 20060216
  Transmission Date: 20060701
  Serious: Yes (Hospitalization, Other)
  Sender: FDA-Public Use
  Company Number: 2005089308

PATIENT
  Age: 92 Year
  Sex: Female

DRUGS (2)
  1. DETROL [Suspect]
     Indication: ILL-DEFINED DISORDER
     Dates: start: 19980101
  2. DDAVP [Suspect]
     Indication: ILL-DEFINED DISORDER

REACTIONS (7)
  - CONSTIPATION [None]
  - DRY MOUTH [None]
  - ILL-DEFINED DISORDER [None]
  - LOSS OF CONSCIOUSNESS [None]
  - MULTIPLE SCLEROSIS [None]
  - OPTIC NEURITIS [None]
  - WALKING AID USER [None]
